FAERS Safety Report 8505864-8 (Version None)
Quarter: 2012Q3

REPORT INFORMATION
  Report Type: 
  Country: None (occurrence: None)
  Receive Date: 20120712
  Receipt Date: 20120706
  Transmission Date: 20120928
  Serious: Yes (Death)
  Sender: FDA-Public Use
  Company Number: US-SHIRE-ALL1-2012-03308

PATIENT
  Age: 50 Year
  Sex: Male

DRUGS (2)
  1. FOSRENOL [Suspect]
     Indication: HYPERPHOSPHATAEMIA
     Dosage: 1000 MG, 2X/DAY:BID
     Route: 048
     Dates: start: 20110922
  2. FOSRENOL [Suspect]
     Dosage: 5000 MG, 1X/DAY:QD
     Route: 048
     Dates: start: 20110922

REACTIONS (2)
  - CONVULSION [None]
  - OVERDOSE [None]
